FAERS Safety Report 11381183 (Version 2)
Quarter: 2016Q1

REPORT INFORMATION
  Report Type: Spontaneous
  Country: FR (occurrence: FR)
  Receive Date: 20150814
  Receipt Date: 20160208
  Transmission Date: 20160525
  Serious: Yes (Death, Hospitalization, Other)
  Sender: FDA-Public Use
  Company Number: FR-ABBVIE-15P-056-1442207-00

PATIENT
  Sex: Male

DRUGS (7)
  1. EPIVIR [Concomitant]
     Active Substance: LAMIVUDINE
     Indication: HIV INFECTION
     Dates: start: 201506
  2. REYATAZ [Concomitant]
     Active Substance: ATAZANAVIR SULFATE
     Indication: HIV INFECTION
     Dosage: 300
     Dates: end: 2015
  3. ZIAGEN [Concomitant]
     Active Substance: ABACAVIR SULFATE
     Indication: HIV INFECTION
     Route: 048
     Dates: start: 201506
  4. PREZISTA [Concomitant]
     Active Substance: DARUNAVIR ETHANOLATE
     Indication: HIV INFECTION
     Dates: start: 201506
  5. KIVEXA [Concomitant]
     Active Substance: ABACAVIR SULFATE\LAMIVUDINE
     Indication: HIV INFECTION
     Dates: end: 2015
  6. KALETRA [Suspect]
     Active Substance: LOPINAVIR\RITONAVIR
     Indication: HIV INFECTION
     Route: 048
     Dates: end: 2012
  7. NORVIR [Suspect]
     Active Substance: RITONAVIR
     Indication: HIV INFECTION
     Route: 048
     Dates: start: 201506

REACTIONS (6)
  - Aneurysm ruptured [Unknown]
  - General physical health deterioration [Unknown]
  - Oesophageal disorder [Unknown]
  - Wrong technique in product usage process [Unknown]
  - Death [Fatal]
  - Nosocomial infection [Unknown]

NARRATIVE: CASE EVENT DATE: 2015
